FAERS Safety Report 9998343 (Version 1)
Quarter: 2014Q1

REPORT INFORMATION
  Report Type: Spontaneous
  Country: IN (occurrence: IN)
  Receive Date: 20140312
  Receipt Date: 20140312
  Transmission Date: 20141002
  Serious: Yes (Hospitalization)
  Sender: FDA-Public Use
  Company Number: IN-MERCK-1403IND004937

PATIENT
  Age: 33 Year
  Sex: Male

DRUGS (1)
  1. VIRAFERONPEG [Suspect]
     Indication: HEPATITIS C
     Dosage: 800 MG, QW
     Route: 058

REACTIONS (2)
  - Vomiting [Unknown]
  - Abdominal pain [Unknown]
